FAERS Safety Report 5270110-8 (Version None)
Quarter: 2007Q1

REPORT INFORMATION
  Report Type: 
  Country: None (occurrence: None)
  Receive Date: 20070320
  Receipt Date: 20070306
  Transmission Date: 20070707
  Serious: Yes (Other)
  Sender: FDA-Public Use
  Company Number: DE-ELI_LILLY_AND_COMPANY-DE200702004317

PATIENT
  Age: 28 Year
  Sex: Male
  Weight: 87 kg

DRUGS (4)
  1. STRATTERA [Suspect]
     Indication: ATTENTION DEFICIT/HYPERACTIVITY DISORDER
     Dosage: 40 MG, DAILY (1/D)
     Route: 048
     Dates: start: 20070216
  2. STRATTERA [Suspect]
     Route: 048
     Dates: start: 20060101
  3. HUMALOG [Suspect]
     Indication: DIABETES MELLITUS INSULIN-DEPENDENT
     Route: 058
  4. EFEROX [Concomitant]
     Dosage: 225 UG, UNK
     Route: 048

REACTIONS (2)
  - HYPOGLYCAEMIA [None]
  - VOMITING [None]
